FAERS Safety Report 13701486 (Version 1)
Quarter: 2017Q2

REPORT INFORMATION
  Report Type: Spontaneous
  Country: US (occurrence: US)
  Receive Date: 20170628
  Receipt Date: 20170628
  Transmission Date: 20170830
  Serious: No
  Sender: FDA-Public Use
  Company Number: None

PATIENT
  Age: 36 Year
  Sex: Male
  Weight: 90.45 kg

DRUGS (1)
  1. PRILOSEC OTC [Suspect]
     Active Substance: OMEPRAZOLE MAGNESIUM
     Indication: GASTROOESOPHAGEAL REFLUX DISEASE
     Dosage: ?          QUANTITY:1 TABLET(S);?
     Route: 048
     Dates: start: 20170627, end: 20170628

REACTIONS (13)
  - Hyperhidrosis [None]
  - Sensory disturbance [None]
  - Chills [None]
  - Headache [None]
  - Migraine [None]
  - Abdominal pain [None]
  - Palpitations [None]
  - Chest discomfort [None]
  - Nausea [None]
  - Insomnia [None]
  - Feeling abnormal [None]
  - Paraesthesia [None]
  - Anxiety [None]

NARRATIVE: CASE EVENT DATE: 20170628
